FAERS Safety Report 18554328 (Version 2)
Quarter: 2020Q4

REPORT INFORMATION
  Report Type: Spontaneous
  Country: GB (occurrence: GB)
  Receive Date: 20201127
  Receipt Date: 20201130
  Transmission Date: 20210114
  Serious: Yes (Hospitalization, Other)
  Sender: FDA-Public Use
  Company Number: GB-TEVA-2020-GB-1852839

PATIENT
  Age: 78 Year
  Sex: Male

DRUGS (3)
  1. CLARITHROMYCIN. [Suspect]
     Active Substance: CLARITHROMYCIN
     Indication: COVID-19 PNEUMONIA
     Dates: start: 20201015, end: 20201023
  2. CO-AMOXICLAV [Suspect]
     Active Substance: AMOXICILLIN\CLAVULANATE POTASSIUM
     Indication: COVID-19 PNEUMONIA
     Route: 048
     Dates: start: 20201021, end: 20201023
  3. AMOXICILLIN. [Suspect]
     Active Substance: AMOXICILLIN
     Indication: COVID-19 PNEUMONIA
     Route: 040
     Dates: start: 20201015, end: 20201020

REACTIONS (1)
  - Pancytopenia [Recovered/Resolved]

NARRATIVE: CASE EVENT DATE: 20201019
